FAERS Safety Report 14063127 (Version 1)
Quarter: 2017Q4

REPORT INFORMATION
  Report Type: Spontaneous
  Country: DE (occurrence: DE)
  Receive Date: 20171009
  Receipt Date: 20171009
  Transmission Date: 20180321
  Serious: Yes (Congenital Anomaly, Other)
  Sender: FDA-Public Use
  Company Number: DE-DRREDDYS-GER/GER/17/0093842

PATIENT
  Sex: Male
  Weight: 3.19 kg

DRUGS (8)
  1. VOMEX A [Concomitant]
     Active Substance: DIMENHYDRINATE
     Indication: NAUSEA
     Route: 064
     Dates: start: 20160928, end: 20160929
  2. FOLIO FORTE [Concomitant]
     Active Substance: FOLIC ACID\VITAMINS
     Indication: PROPHYLAXIS OF NEURAL TUBE DEFECT
     Route: 064
  3. HUMINSULIN NORMAL [Concomitant]
     Indication: GESTATIONAL DIABETES
     Route: 064
  4. IBUPROFEN. [Concomitant]
     Active Substance: IBUPROFEN
     Indication: HEADACHE
     Route: 064
     Dates: start: 20160928, end: 20160929
  5. AMPICILLIN [Concomitant]
     Active Substance: AMPICILLIN
     Indication: STREPTOCOCCUS TEST POSITIVE
     Route: 064
  6. VENLAFAXINE [Suspect]
     Active Substance: VENLAFAXINE HYDROCHLORIDE
     Route: 064
  7. VENLAFAXINE [Suspect]
     Active Substance: VENLAFAXINE HYDROCHLORIDE
     Indication: BORDERLINE PERSONALITY DISORDER
     Dosage: INITIAL 112.5MG FOR 7 DAYS, DOSAGE INCREASED TO 150 MG/DAY FROM GW 28
     Route: 064
     Dates: start: 20160608, end: 20170312
  8. HUMINSULIN BASAL [Concomitant]
     Active Substance: INSULIN NOS
     Indication: GESTATIONAL DIABETES
     Route: 064

REACTIONS (3)
  - Foetal exposure during pregnancy [Unknown]
  - Congenital skin dimples [Not Recovered/Not Resolved]
  - Drug withdrawal syndrome neonatal [Recovered/Resolved]
